FAERS Safety Report 7962738-9 (Version None)
Quarter: 2011Q4

REPORT INFORMATION
  Report Type: 
  Country: None (occurrence: None)
  Receive Date: 20111207
  Receipt Date: 20110603
  Transmission Date: 20120403
  Serious: Yes (Other)
  Sender: FDA-Public Use
  Company Number: GB-PFIZER INC-2011295754

PATIENT
  Age: 32 Year
  Sex: Male

DRUGS (6)
  1. ILOPROST [Suspect]
     Dosage: 7 ML, UNK
  2. SILDENAFIL [Suspect]
     Indication: PULMONARY ARTERIAL HYPERTENSION
     Dosage: UNK
  3. BOSENTAN [Suspect]
     Indication: PULMONARY ARTERIAL HYPERTENSION
     Dosage: UNK
  4. LEVOTHYROXINE SODIUM [Suspect]
     Indication: CARDIAC DISORDER
  5. SALINE MIXTURE [Suspect]
     Dosage: 5 ML, UNK
  6. WARFARIN SODIUM [Suspect]
     Dosage: UNK

REACTIONS (7)
  - SKIN INFECTION [None]
  - GAIT DISTURBANCE [None]
  - MUSCLE SPASMS [None]
  - SKIN IRRITATION [None]
  - DIARRHOEA [None]
  - PALPITATIONS [None]
  - JAW DISORDER [None]
